FAERS Safety Report 4555760-6 (Version None)
Quarter: 2005Q1

REPORT INFORMATION
  Report Type: 
  Country: None (occurrence: None)
  Receive Date: 20050112
  Receipt Date: 20041006
  Transmission Date: 20050727
  Serious: Yes (Other)
  Sender: FDA-Public Use
  Company Number: 200420969BWH

PATIENT
  Age: 43 Year
  Sex: Male
  Weight: 75.2971 kg

DRUGS (3)
  1. CIPRO [Suspect]
     Indication: PROSTATITIS
  2. VIOXX [Concomitant]
  3. CEFUROXIME [Concomitant]

REACTIONS (3)
  - ARTHRALGIA [None]
  - JOINT DISLOCATION [None]
  - ROTATOR CUFF SYNDROME [None]
